FAERS Safety Report 11409017 (Version 45)
Quarter: 2024Q4

REPORT INFORMATION
  Report Type: Report from Study
  Country: CA (occurrence: CA)
  Receive Date: 20150824
  Receipt Date: 20241203
  Transmission Date: 20250115
  Serious: Yes (Hospitalization, Other)
  Sender: ROCHE
  Company Number: CA-ROCHE-1624514

PATIENT
  Age: 67 Year
  Sex: Female

DRUGS (81)
  1. XOLAIR [Suspect]
     Active Substance: OMALIZUMAB
     Indication: Asthma
     Route: 058
     Dates: start: 20150312
  2. XOLAIR [Suspect]
     Active Substance: OMALIZUMAB
     Dosage: UNK
     Route: 058
     Dates: start: 20150521
  3. XOLAIR [Suspect]
     Active Substance: OMALIZUMAB
     Dosage: UNK
     Route: 058
     Dates: start: 20150604
  4. XOLAIR [Suspect]
     Active Substance: OMALIZUMAB
     Dosage: UNK
     Route: 058
     Dates: start: 20160114
  5. XOLAIR [Suspect]
     Active Substance: OMALIZUMAB
     Dosage: UNK
     Route: 058
     Dates: start: 20160226
  6. XOLAIR [Suspect]
     Active Substance: OMALIZUMAB
     Dosage: UNK
     Route: 058
     Dates: start: 20160428
  7. XOLAIR [Suspect]
     Active Substance: OMALIZUMAB
     Dosage: UNK
     Route: 058
     Dates: start: 20160512
  8. XOLAIR [Suspect]
     Active Substance: OMALIZUMAB
     Dosage: UNK
     Route: 058
     Dates: start: 20160526
  9. XOLAIR [Suspect]
     Active Substance: OMALIZUMAB
     Dosage: UNK
     Route: 058
     Dates: start: 20160811
  10. XOLAIR [Suspect]
     Active Substance: OMALIZUMAB
     Dosage: UNK
     Route: 058
     Dates: start: 20160825
  11. XOLAIR [Suspect]
     Active Substance: OMALIZUMAB
     Dosage: UNK
     Route: 058
     Dates: start: 20160908
  12. XOLAIR [Suspect]
     Active Substance: OMALIZUMAB
     Dosage: UNK
     Route: 058
     Dates: start: 20161020
  13. XOLAIR [Suspect]
     Active Substance: OMALIZUMAB
     Dosage: UNK
     Route: 058
     Dates: start: 20170316
  14. XOLAIR [Suspect]
     Active Substance: OMALIZUMAB
     Dosage: UNK
     Route: 058
     Dates: start: 20170330
  15. XOLAIR [Suspect]
     Active Substance: OMALIZUMAB
     Dosage: UNK
     Route: 058
     Dates: start: 20170817
  16. XOLAIR [Suspect]
     Active Substance: OMALIZUMAB
     Dosage: UNK
     Route: 058
     Dates: start: 20170831
  17. XOLAIR [Suspect]
     Active Substance: OMALIZUMAB
     Dosage: UNK
     Route: 058
     Dates: start: 20171012
  18. XOLAIR [Suspect]
     Active Substance: OMALIZUMAB
     Dosage: UNK
     Route: 058
     Dates: start: 20171026
  19. XOLAIR [Suspect]
     Active Substance: OMALIZUMAB
     Dosage: UNK
     Route: 058
     Dates: start: 20171109
  20. XOLAIR [Suspect]
     Active Substance: OMALIZUMAB
     Dosage: 225 MG, BIW
     Route: 058
     Dates: start: 20171207
  21. XOLAIR [Suspect]
     Active Substance: OMALIZUMAB
     Dosage: 300 MG, BIW
     Route: 058
     Dates: start: 20180706
  22. XOLAIR [Suspect]
     Active Substance: OMALIZUMAB
     Dosage: 300 MG, BIW
     Route: 058
     Dates: start: 20180830
  23. XOLAIR [Suspect]
     Active Substance: OMALIZUMAB
     Dosage: 300 MG, BIW
     Route: 058
     Dates: start: 20181122
  24. XOLAIR [Suspect]
     Active Substance: OMALIZUMAB
     Dosage: 300 MG, BIW
     Route: 058
     Dates: start: 20190205
  25. XOLAIR [Suspect]
     Active Substance: OMALIZUMAB
     Dosage: 300 MG, BIW
     Route: 058
     Dates: start: 20180622
  26. XOLAIR [Suspect]
     Active Substance: OMALIZUMAB
     Dosage: 300 MG, BIW
     Route: 058
     Dates: start: 20190321
  27. XOLAIR [Suspect]
     Active Substance: OMALIZUMAB
     Route: 058
     Dates: start: 20190404
  28. XOLAIR [Suspect]
     Active Substance: OMALIZUMAB
     Dosage: 300 MG, BIW
     Route: 058
     Dates: start: 20190530
  29. XOLAIR [Suspect]
     Active Substance: OMALIZUMAB
     Dosage: 300 MG, BIW
     Route: 058
     Dates: start: 20190919
  30. XOLAIR [Suspect]
     Active Substance: OMALIZUMAB
     Dosage: 300 MG, BIW
     Route: 058
     Dates: start: 20191017
  31. XOLAIR [Suspect]
     Active Substance: OMALIZUMAB
     Dosage: 300 MG, BIW
     Route: 058
     Dates: start: 20191128
  32. XOLAIR [Suspect]
     Active Substance: OMALIZUMAB
     Dosage: 300 MG, BIW
     Route: 058
     Dates: start: 20150312, end: 20171207
  33. XOLAIR [Suspect]
     Active Substance: OMALIZUMAB
     Dosage: 300 MG, BIW
     Route: 058
     Dates: start: 20180622
  34. XOLAIR [Suspect]
     Active Substance: OMALIZUMAB
     Route: 058
     Dates: start: 20210513
  35. XOLAIR [Suspect]
     Active Substance: OMALIZUMAB
     Route: 058
  36. XOLAIR [Suspect]
     Active Substance: OMALIZUMAB
     Route: 058
  37. XOLAIR [Suspect]
     Active Substance: OMALIZUMAB
     Route: 058
  38. XOLAIR [Suspect]
     Active Substance: OMALIZUMAB
     Route: 058
  39. XOLAIR [Suspect]
     Active Substance: OMALIZUMAB
     Route: 058
  40. XOLAIR [Suspect]
     Active Substance: OMALIZUMAB
     Route: 058
  41. XOLAIR [Suspect]
     Active Substance: OMALIZUMAB
     Route: 058
  42. XOLAIR [Suspect]
     Active Substance: OMALIZUMAB
     Route: 058
  43. XOLAIR [Suspect]
     Active Substance: OMALIZUMAB
     Route: 058
  44. XOLAIR [Suspect]
     Active Substance: OMALIZUMAB
     Route: 058
  45. XOLAIR [Suspect]
     Active Substance: OMALIZUMAB
     Route: 058
  46. XOLAIR [Suspect]
     Active Substance: OMALIZUMAB
     Route: 058
  47. XOLAIR [Suspect]
     Active Substance: OMALIZUMAB
     Route: 058
  48. XOLAIR [Suspect]
     Active Substance: OMALIZUMAB
     Route: 058
  49. XOLAIR [Suspect]
     Active Substance: OMALIZUMAB
     Route: 058
  50. XOLAIR [Suspect]
     Active Substance: OMALIZUMAB
     Route: 058
  51. XOLAIR [Suspect]
     Active Substance: OMALIZUMAB
     Route: 058
  52. XOLAIR [Suspect]
     Active Substance: OMALIZUMAB
     Route: 058
  53. XOLAIR [Suspect]
     Active Substance: OMALIZUMAB
     Route: 058
  54. XOLAIR [Suspect]
     Active Substance: OMALIZUMAB
     Route: 058
  55. XOLAIR [Suspect]
     Active Substance: OMALIZUMAB
     Route: 058
  56. XOLAIR [Suspect]
     Active Substance: OMALIZUMAB
     Route: 058
  57. XOLAIR [Suspect]
     Active Substance: OMALIZUMAB
     Route: 058
  58. XOLAIR [Suspect]
     Active Substance: OMALIZUMAB
     Route: 058
  59. XOLAIR [Suspect]
     Active Substance: OMALIZUMAB
     Route: 058
  60. XOLAIR [Suspect]
     Active Substance: OMALIZUMAB
     Route: 058
  61. XOLAIR [Suspect]
     Active Substance: OMALIZUMAB
     Route: 058
  62. XOLAIR [Suspect]
     Active Substance: OMALIZUMAB
     Route: 058
  63. XOLAIR [Suspect]
     Active Substance: OMALIZUMAB
     Route: 058
  64. XOLAIR [Suspect]
     Active Substance: OMALIZUMAB
     Route: 058
  65. XOLAIR [Suspect]
     Active Substance: OMALIZUMAB
     Route: 058
  66. XOLAIR [Suspect]
     Active Substance: OMALIZUMAB
     Route: 058
  67. XOLAIR [Suspect]
     Active Substance: OMALIZUMAB
     Route: 058
  68. XOLAIR [Suspect]
     Active Substance: OMALIZUMAB
     Route: 058
  69. XOLAIR [Suspect]
     Active Substance: OMALIZUMAB
     Route: 058
  70. XOLAIR [Suspect]
     Active Substance: OMALIZUMAB
     Route: 058
  71. XOLAIR [Suspect]
     Active Substance: OMALIZUMAB
     Route: 058
  72. XOLAIR [Suspect]
     Active Substance: OMALIZUMAB
     Route: 058
  73. XOLAIR [Suspect]
     Active Substance: OMALIZUMAB
     Route: 058
  74. XOLAIR [Suspect]
     Active Substance: OMALIZUMAB
     Route: 058
  75. XOLAIR [Suspect]
     Active Substance: OMALIZUMAB
     Route: 058
  76. XOLAIR [Suspect]
     Active Substance: OMALIZUMAB
     Route: 058
  77. XOLAIR [Suspect]
     Active Substance: OMALIZUMAB
     Route: 058
     Dates: start: 20241118
  78. CORTISONE [Concomitant]
     Active Substance: CORTISONE
     Indication: Product used for unknown indication
     Dosage: 5 MG, UNK
     Route: 065
  79. CORTISONE [Concomitant]
     Active Substance: CORTISONE
     Dosage: 2.5 MG, UNK
     Route: 065
  80. SYMBICORT [Concomitant]
     Active Substance: BUDESONIDE\FORMOTEROL FUMARATE DIHYDRATE
     Indication: Product used for unknown indication
     Dosage: 2 DF, BID
     Route: 055
  81. VENTOLIN [Concomitant]
     Active Substance: ALBUTEROL SULFATE
     Indication: Product used for unknown indication
     Dosage: FOR ABOUT 2 WEEKS
     Route: 055

REACTIONS (62)
  - Hydrocephalus [Unknown]
  - CSF volume increased [Unknown]
  - Headache [Recovered/Resolved]
  - Huntington^s disease [Unknown]
  - Chorea [Unknown]
  - Cerebrospinal fluid leakage [Unknown]
  - Transfusion-related circulatory overload [Unknown]
  - Headache [Recovered/Resolved]
  - Malaise [Unknown]
  - Blood pressure systolic increased [Not Recovered/Not Resolved]
  - Fall [Unknown]
  - Lip injury [Unknown]
  - Contusion [Unknown]
  - Inflammation of wound [Unknown]
  - Influenza [Unknown]
  - Respiratory rate increased [Unknown]
  - Abdominal hernia [Recovering/Resolving]
  - Animal scratch [Unknown]
  - Feeling abnormal [Unknown]
  - Asthenia [Unknown]
  - Heart rate increased [Unknown]
  - Injury [Unknown]
  - Bronchitis [Unknown]
  - Arthralgia [Unknown]
  - Productive cough [Unknown]
  - Sputum discoloured [Unknown]
  - Oral herpes [Unknown]
  - Joint swelling [Unknown]
  - Skin discolouration [Unknown]
  - Seasonal allergy [Recovering/Resolving]
  - Hot flush [Recovered/Resolved]
  - Labyrinthitis [Recovering/Resolving]
  - Musculoskeletal chest pain [Unknown]
  - Middle insomnia [Unknown]
  - Terminal insomnia [Unknown]
  - Hiccups [Unknown]
  - Nausea [Recovered/Resolved]
  - Dizziness [Recovered/Resolved]
  - Fatigue [Unknown]
  - Dyspnoea [Unknown]
  - Wheezing [Unknown]
  - Rhinorrhoea [Unknown]
  - Balance disorder [Unknown]
  - Haemorrhage [Unknown]
  - Diabetes mellitus inadequate control [Unknown]
  - Cerebral disorder [Unknown]
  - Device dislocation [Unknown]
  - Intracranial pressure increased [Unknown]
  - Akathisia [Unknown]
  - Cerebral vasoconstriction [Unknown]
  - Limb injury [Recovering/Resolving]
  - Skin laceration [Unknown]
  - Cough [Unknown]
  - Hypokinesia [Unknown]
  - Restlessness [Unknown]
  - Anxiety [Unknown]
  - Tremor [Unknown]
  - Middle insomnia [Unknown]
  - Paraesthesia [Unknown]
  - Asthma [Recovering/Resolving]
  - Incorrect route of product administration [Unknown]
  - Back pain [Not Recovered/Not Resolved]

NARRATIVE: CASE EVENT DATE: 20150312
